FAERS Safety Report 7410143-6 (Version None)
Quarter: 2011Q2

REPORT INFORMATION
  Report Type: 
  Country: None (occurrence: None)
  Receive Date: 20110412
  Receipt Date: 20110404
  Transmission Date: 20111010
  Serious: Yes (Hospitalization)
  Sender: FDA-Public Use
  Company Number: FR-KINGPHARMUSA00001-K201100390

PATIENT
  Age: 79 Year
  Sex: Female

DRUGS (9)
  1. ALTACE [Suspect]
     Indication: HYPERTENSION
     Dosage: UNK
     Route: 048
     Dates: end: 20100426
  2. FRAGMIN [Concomitant]
     Route: 065
  3. MOTILIUM [Concomitant]
     Route: 065
  4. DAFALGAN [Concomitant]
     Route: 065
  5. METFORMIN HCL [Concomitant]
     Route: 065
  6. CRESTOR [Concomitant]
     Route: 065
  7. TOPALGIC [Concomitant]
     Route: 065
  8. PIOGLITAZONE [Concomitant]
     Route: 065
  9. ESOMEPRAZOLE [Concomitant]
     Route: 065

REACTIONS (6)
  - LACTIC ACIDOSIS [None]
  - RENAL FAILURE ACUTE [None]
  - VOMITING [None]
  - HYPERKALAEMIA [None]
  - DEHYDRATION [None]
  - FAECES DISCOLOURED [None]
